FAERS Safety Report 6737822-8 (Version None)
Quarter: 2010Q2

REPORT INFORMATION
  Report Type: 
  Country: None (occurrence: None)
  Receive Date: 20100524
  Receipt Date: 20100513
  Transmission Date: 20101027
  Serious: Yes (Death, Hospitalization)
  Sender: FDA-Public Use
  Company Number: CA-JNJFOC-20091206124

PATIENT
  Sex: Male
  Weight: 52 kg

DRUGS (12)
  1. REMICADE [Suspect]
     Indication: COLITIS ULCERATIVE
     Route: 042
  2. REMICADE [Suspect]
     Route: 042
  3. PREDNISONE TAB [Concomitant]
     Route: 048
  4. PENTASA [Concomitant]
     Route: 048
  5. CALCIUM [Concomitant]
     Route: 048
  6. ATIVAN [Concomitant]
  7. POTASSIUM [Concomitant]
  8. OMEPRAZOLE [Concomitant]
     Route: 048
  9. ACTONEL [Concomitant]
  10. ATROVENT [Concomitant]
     Route: 055
  11. FLOVENT [Concomitant]
     Route: 055
  12. SALBUTAMOL [Concomitant]
     Route: 055

REACTIONS (3)
  - ANAEMIA [None]
  - DEATH [None]
  - SYNCOPE [None]
